FAERS Safety Report 16223684 (Version 1)
Quarter: 2019Q2

REPORT INFORMATION
  Report Type: Spontaneous
  Country: SE (occurrence: SE)
  Receive Date: 20190422
  Receipt Date: 20190422
  Transmission Date: 20190711
  Serious: Yes (Hospitalization)
  Sender: FDA-Public Use
  Company Number: PHHY2019SE090397

PATIENT
  Age: 48 Year
  Sex: Female

DRUGS (2)
  1. QUETIAPINE. [Suspect]
     Active Substance: QUETIAPINE
     Indication: PRODUCT USED FOR UNKNOWN INDICATION
     Dosage: 200 MG, (TOTAL)
     Route: 065
     Dates: start: 20161114
  2. DIMOR [Suspect]
     Active Substance: LOPERAMIDE
     Indication: PRODUCT USED FOR UNKNOWN INDICATION
     Dosage: 12 MG, (TOTAL)
     Route: 048
     Dates: start: 20161114

REACTIONS (2)
  - Loss of consciousness [Unknown]
  - Pupillary light reflex tests abnormal [Unknown]

NARRATIVE: CASE EVENT DATE: 20161114
